FAERS Safety Report 4575716-7 (Version None)
Quarter: 2005Q1

REPORT INFORMATION
  Report Type: 
  Country: None (occurrence: None)
  Receive Date: 20050209
  Receipt Date: 20050128
  Transmission Date: 20050727
  Serious: Yes (Other)
  Sender: FDA-Public Use
  Company Number: GB-JNJFOC-20050201050

PATIENT
  Age: 67 Year
  Sex: Female

DRUGS (3)
  1. IMODIUM [Suspect]
     Indication: DIARRHOEA
  2. OMEPRAZOLE [Concomitant]
  3. ATENOLOL [Concomitant]

REACTIONS (1)
  - HEART RATE DECREASED [None]
